FAERS Safety Report 10396165 (Version 1)
Quarter: 2014Q1

REPORT INFORMATION
  Report Type: Spontaneous
  Country: US (occurrence: None)
  Receive Date: 20130724
  Receipt Date: 20130724
  Transmission Date: 20141002
  Serious: Yes (Hospitalization)
  Sender: FDA-Public Use
  Company Number: PHEH2011US06017

PATIENT
  Age: 72 Year
  Sex: Female

DRUGS (1)
  1. GLEEVEC (IMATINIB) [Suspect]
     Indication: CHRONIC MYELOID LEUKAEMIA
     Route: 048
     Dates: start: 20081101

REACTIONS (6)
  - Asthenia [None]
  - Vomiting [None]
  - Decreased appetite [None]
  - Myalgia [None]
  - Bone pain [None]
  - Muscle spasms [None]
